FAERS Safety Report 8242533-6 (Version None)
Quarter: 2012Q1

REPORT INFORMATION
  Report Type: 
  Country: None (occurrence: None)
  Receive Date: 20120329
  Receipt Date: 20120319
  Transmission Date: 20120608
  Serious: Yes (Hospitalization, Other)
  Sender: FDA-Public Use
  Company Number: PHEH2012US006157

PATIENT
  Sex: Male

DRUGS (9)
  1. VITAMIN B-12 [Concomitant]
  2. MULTI-VITAMINS [Concomitant]
  3. TAMSULOSIN HCL [Concomitant]
  4. CALTRATE +D [Concomitant]
  5. EXJADE [Suspect]
     Dosage: 500 MG, FOUR TIMES PER DAY
     Route: 048
  6. FOLIC ACID [Concomitant]
  7. FINASTERIDE [Concomitant]
  8. ASPIRIN [Concomitant]
  9. NEXIUM [Concomitant]

REACTIONS (6)
  - NEOPLASM MALIGNANT [None]
  - PNEUMONIA [None]
  - HIP FRACTURE [None]
  - FALL [None]
  - WRONG TECHNIQUE IN DRUG USAGE PROCESS [None]
  - MALAISE [None]
